FAERS Safety Report 6781154-9 (Version None)
Quarter: 2010Q2

REPORT INFORMATION
  Report Type: 
  Country: None (occurrence: None)
  Receive Date: 20100621
  Receipt Date: 20100521
  Transmission Date: 20101027
  Serious: No
  Sender: FDA-Public Use
  Company Number: US-BAYER-201015952BCC

PATIENT
  Age: 73 Year
  Sex: Female
  Weight: 90 kg

DRUGS (7)
  1. ALEVE [Suspect]
     Indication: ARTHRITIS
     Dosage: TOTAL DAILY DOSE: 440 MG  UNIT DOSE: 220 MG
     Route: 048
     Dates: start: 20070101, end: 20070101
  2. DIOVIDE [Concomitant]
     Route: 065
  3. ALEXA [Concomitant]
     Indication: NERVOUSNESS
     Route: 065
  4. CARBAMAZEPINE [Concomitant]
     Route: 065
     Dates: start: 19850101
  5. ALLOPURINOL [Concomitant]
     Route: 065
  6. COLCHICINE [Concomitant]
     Route: 065
  7. ANTI-SEIZURE [Concomitant]
     Indication: TRIGEMINAL NERVE DISORDER
     Route: 065

REACTIONS (2)
  - DIARRHOEA [None]
  - VOMITING [None]
